FAERS Safety Report 7005446-3 (Version None)
Quarter: 2010Q3

REPORT INFORMATION
  Report Type: 
  Country: None (occurrence: None)
  Receive Date: 20100921
  Receipt Date: 20100909
  Transmission Date: 20110219
  Serious: Yes (Other)
  Sender: FDA-Public Use
  Company Number: JP-ROCHE-727377

PATIENT
  Sex: Male

DRUGS (20)
  1. ACTEMRA [Suspect]
     Indication: RHEUMATOID ARTHRITIS
     Route: 041
     Dates: start: 20080701, end: 20080701
  2. ACTEMRA [Suspect]
     Route: 041
     Dates: start: 20080812, end: 20080812
  3. ACTEMRA [Suspect]
     Route: 041
     Dates: start: 20080916, end: 20080916
  4. ACTEMRA [Suspect]
     Route: 041
     Dates: start: 20081104, end: 20081104
  5. ACTEMRA [Suspect]
     Route: 041
     Dates: start: 20081216, end: 20081216
  6. ACTEMRA [Suspect]
     Route: 041
     Dates: start: 20090127, end: 20090127
  7. ACTEMRA [Suspect]
     Route: 041
     Dates: start: 20090310, end: 20090310
  8. ACTEMRA [Suspect]
     Route: 041
     Dates: start: 20090421, end: 20090421
  9. ACTEMRA [Suspect]
     Route: 041
     Dates: start: 20090602
  10. ACTEMRA [Suspect]
     Dosage: DOSAGE IS UNCERTAIN
     Route: 041
     Dates: start: 20100101
  11. PREDONINE [Concomitant]
     Route: 048
  12. PREDNISOLONE [Concomitant]
     Route: 048
  13. LOXONIN [Concomitant]
     Route: 048
  14. SELBEX [Concomitant]
     Dosage: DOSE FORM: MINUTE GRAIN
     Route: 048
  15. VITANEURIN [Concomitant]
     Route: 048
  16. OMEPRAL [Concomitant]
     Route: 048
  17. BUFFERIN [Concomitant]
     Route: 048
  18. URSO 250 [Concomitant]
     Route: 048
  19. LAMISIL [Concomitant]
     Dosage: DOSE FORM: OINTMENT AND CREAM
     Route: 062
  20. INFLUENZA VACCINE [Concomitant]
     Dosage: BIKEN HA(INFLUENZA HA VACCINE)
     Route: 058
     Dates: start: 20081104, end: 20081104

REACTIONS (1)
  - CEREBRAL INFARCTION [None]
